FAERS Safety Report 19470315 (Version 1)
Quarter: 2021Q2

REPORT INFORMATION
  Report Type: Spontaneous
  Country: NO (occurrence: NO)
  Receive Date: 20210628
  Receipt Date: 20210628
  Transmission Date: 20210717
  Serious: Yes (Other)
  Sender: FDA-Public Use
  Company Number: NO-TEVA-2021-NO-1925140

PATIENT
  Sex: Female

DRUGS (1)
  1. TETRACYCLIN ACTAVIS [Suspect]
     Active Substance: TETRACYCLINE
     Route: 065

REACTIONS (5)
  - Nasal inflammation [Unknown]
  - Lacrimal gland enlargement [Unknown]
  - Meibomian gland dysfunction [Unknown]
  - Lip dry [Unknown]
  - Dry throat [Unknown]
